FAERS Safety Report 8947032 (Version 1)
Quarter: 2012Q4

REPORT INFORMATION
  Report Type: 
  Country: SA (occurrence: SA)
  Receive Date: 20121205
  Receipt Date: 20121205
  Transmission Date: 20130627
  Serious: Yes (Other)
  Sender: FDA-Public Use
  Company Number: SA-009507513-1212SAU000977

PATIENT
  Age: 31 Year
  Sex: Female

DRUGS (2)
  1. PREGNYL [Suspect]
     Indication: PREGNANCY
     Dosage: UNK
     Route: 065
  2. METRODINE [Suspect]
     Indication: PREGNANCY
     Route: 065

REACTIONS (3)
  - Premature delivery [Recovered/Resolved]
  - Caesarean section [Recovered/Resolved]
  - Ovarian hyperstimulation syndrome [Recovered/Resolved]
